FAERS Safety Report 7910557-1 (Version None)
Quarter: 2011Q4

REPORT INFORMATION
  Report Type: 
  Country: None (occurrence: None)
  Receive Date: 20111111
  Receipt Date: 20111107
  Transmission Date: 20120403
  Serious: Yes (Other)
  Sender: FDA-Public Use
  Company Number: PHHY2011BR89232

PATIENT
  Sex: Male

DRUGS (3)
  1. TEGRETOL-XR [Suspect]
     Indication: CONVULSION
     Dosage: 5 DF, (300 MG 5 TABLETS DAILY)
  2. TEGRETOL-XR [Suspect]
     Dosage: 5 DF, (400 MG 5 TABLETS DAILY)
  3. TEGRETOL-XR [Suspect]
     Dosage: 5 DF, (300 MG 5 TABLETS DAILY)

REACTIONS (1)
  - SINGLE FUNCTIONAL KIDNEY [None]
